FAERS Safety Report 6417944-1 (Version None)
Quarter: 2009Q4

REPORT INFORMATION
  Report Type: 
  Country: None (occurrence: None)
  Receive Date: 20091028
  Receipt Date: 20091005
  Transmission Date: 20100525
  Serious: Yes (Other)
  Sender: FDA-Public Use
  Company Number: CHPA2009US19716

PATIENT
  Sex: Female

DRUGS (1)
  1. BENEFIBER SUGAR FREE (NCH) [Suspect]
     Indication: MEDICAL DIET
     Dosage: 3 DF, QD
     Route: 048
     Dates: start: 20091004, end: 20091004

REACTIONS (1)
  - BLOOD PRESSURE INCREASED [None]
